FAERS Safety Report 7427770-2 (Version None)
Quarter: 2011Q1

REPORT INFORMATION
  Report Type: 
  Country: None (occurrence: None)
  Receive Date: 20110302
  Receipt Date: 20110107
  Transmission Date: 20110831
  Serious: No
  Sender: FDA-Public Use
  Company Number: 025126

PATIENT
  Sex: Male
  Weight: 68 kg

DRUGS (7)
  1. CIMZIA [Suspect]
     Indication: CROHN'S DISEASE
     Dosage: TWO VIALS SUBCUTANEOUS, 1 VIAL SUBCUTANEOUS
     Route: 058
     Dates: start: 20100714, end: 20101101
  2. CIMZIA [Suspect]
     Indication: CROHN'S DISEASE
     Dosage: TWO VIALS SUBCUTANEOUS, 1 VIAL SUBCUTANEOUS
     Route: 058
     Dates: start: 20101201
  3. VITAMIN B12 NOS [Concomitant]
  4. DAILY VITAMINS [Concomitant]
  5. TOPROL-XL [Concomitant]
  6. FOLIC ACID [Concomitant]
  7. IRON [Concomitant]

REACTIONS (4)
  - FATIGUE [None]
  - DRUG INEFFECTIVE [None]
  - ABDOMINAL PAIN [None]
  - BOWEL MOVEMENT IRREGULARITY [None]
